FAERS Safety Report 9460799 (Version 2)
Quarter: 2013Q4

REPORT INFORMATION
  Report Type: Report from Study
  Country: US (occurrence: US)
  Receive Date: 20130815
  Receipt Date: 20131122
  Transmission Date: 20140711
  Serious: Yes (Hospitalization)
  Sender: FDA-Public Use
  Company Number: US-ROCHE-1262381

PATIENT
  Age: 55 Year
  Sex: Female

DRUGS (3)
  1. BMS-986094 [Suspect]
     Indication: CHRONIC HEPATITIS C
     Route: 065
     Dates: start: 20120105, end: 20120402
  2. PEG-INTERFERON ALFA 2A [Suspect]
     Indication: CHRONIC HEPATITIS C
     Route: 058
     Dates: start: 20120105, end: 20120621
  3. RIBAVIRIN [Suspect]
     Indication: CHRONIC HEPATITIS C
     Route: 048
     Dates: start: 20120105, end: 20120616

REACTIONS (2)
  - Cervical vertebral fracture [Recovered/Resolved]
  - Prothrombin time prolonged [Recovered/Resolved]
